FAERS Safety Report 8587713-5 (Version None)
Quarter: 2012Q3

REPORT INFORMATION
  Report Type: 
  Country: None (occurrence: None)
  Receive Date: 20120813
  Receipt Date: 20120807
  Transmission Date: 20120928
  Serious: Yes (Other)
  Sender: FDA-Public Use
  Company Number: CA-AMGEN-CANSP2012049949

PATIENT
  Age: 38 Year
  Sex: Female
  Weight: 63.492 kg

DRUGS (7)
  1. LEVOTHYROXINE SODIUM [Concomitant]
     Dosage: UNK
  2. ORTHO TRI-CYCLEN LO [Concomitant]
     Dosage: UNK
  3. SERTRALINE HYDROCHLORIDE [Concomitant]
     Dosage: UNK
  4. HUMIRA [Suspect]
     Dosage: 40 MG, QWK
     Route: 058
  5. CELEBREX [Concomitant]
     Dosage: UNK
  6. ENBREL [Suspect]
     Indication: PRODUCT USED FOR UNKNOWN INDICATION
     Dosage: UNK UNK, QWK
     Route: 058
  7. TRAMADOL HYDROCHLORIDE AND ACETAMINOPHEN [Concomitant]
     Dosage: UNK

REACTIONS (5)
  - CONDITION AGGRAVATED [None]
  - DYSTHYMIC DISORDER [None]
  - PSORIATIC ARTHROPATHY [None]
  - DRUG INEFFECTIVE [None]
  - HYPERSENSITIVITY [None]
